FAERS Safety Report 5672406-4 (Version None)
Quarter: 2008Q1

REPORT INFORMATION
  Report Type: 
  Country: None (occurrence: None)
  Receive Date: 20080318
  Receipt Date: 20080318
  Transmission Date: 20080703
  Serious: Yes (Life-Threatening, Other)
  Sender: FDA-Public Use
  Company Number: None

PATIENT
  Age: 48 Year
  Sex: Female
  Weight: 78.4723 kg

DRUGS (2)
  1. FENTANYL [Suspect]
     Indication: NEURALGIA
     Dosage: 25MCG EVERY 3 DAYS
     Dates: start: 20080315, end: 20080316
  2. FENTANYL [Suspect]

REACTIONS (8)
  - DIZZINESS [None]
  - FEAR [None]
  - FEELING ABNORMAL [None]
  - HEADACHE [None]
  - HEART RATE INCREASED [None]
  - INITIAL INSOMNIA [None]
  - SOMNOLENCE [None]
  - VOMITING [None]
